FAERS Safety Report 9162961 (Version 1)
Quarter: 2013Q1

REPORT INFORMATION
  Report Type: Spontaneous
  Country: DE (occurrence: DE)
  Receive Date: 20130314
  Receipt Date: 20130314
  Transmission Date: 20140127
  Serious: Yes (Death, Hospitalization)
  Sender: FDA-Public Use
  Company Number: GXKR2013DE001159

PATIENT
  Sex: 0

DRUGS (6)
  1. RIBAVIRIN [Suspect]
     Indication: HEPATITIS C
     Dosage: 1000 MG, UNK
     Route: 048
     Dates: start: 20121001, end: 20121112
  2. RIBAVIRIN [Suspect]
     Dosage: 600 MG, UNK
     Route: 048
     Dates: start: 20121113
  3. INCIVO [Suspect]
     Indication: HEPATITIS C
     Dosage: 6 TBL.
     Route: 048
     Dates: start: 20121001
  4. PEGASYS [Suspect]
     Indication: HEPATITIS C
     Dosage: 1 FPEN/W
     Route: 058
     Dates: start: 20121001
  5. MORPHIN AL [Concomitant]
     Indication: OSTEOPOROSIS
     Dosage: 2 TBL.
     Route: 048
     Dates: start: 20120801
  6. DIAZEPAM [Concomitant]
     Route: 048

REACTIONS (13)
  - Agranulocytosis [Fatal]
  - Anaemia [Fatal]
  - Leukopenia [Fatal]
  - Pneumonia [Fatal]
  - Bronchitis [Fatal]
  - Septic shock [Fatal]
  - Disseminated intravascular coagulation [Fatal]
  - Lactic acidosis [Fatal]
  - Multi-organ failure [Fatal]
  - Renal failure acute [Fatal]
  - Anuria [Fatal]
  - Confusional state [Fatal]
  - General physical health deterioration [Fatal]
